FAERS Safety Report 4711728-8 (Version None)
Quarter: 2005Q3

REPORT INFORMATION
  Report Type: 
  Country: None (occurrence: None)
  Receive Date: 20050708
  Receipt Date: 20050708
  Transmission Date: 20060218
  Serious: Yes (Other)
  Sender: FDA-Public Use
  Company Number: None

PATIENT
  Sex: Female
  Weight: 83 kg

DRUGS (5)
  1. DOCETAXEL [Suspect]
     Indication: BREAST CANCER
     Dosage: SEE IMAGE
     Dates: start: 20050414
  2. DOXORUBICIN HCL [Suspect]
     Dosage: SEE IMAGE
  3. CYCLOPHOSPHAMIDE [Suspect]
     Dosage: SEE IMAGE
  4. GEMCITABINE [Suspect]
     Dosage: SEE IMAGE
  5. NEULASTA [Concomitant]

REACTIONS (2)
  - PULMONARY EMBOLISM [None]
  - SINUS TACHYCARDIA [None]
